FAERS Safety Report 19445673 (Version 1)
Quarter: 2021Q2

REPORT INFORMATION
  Report Type: Spontaneous
  Country: US (occurrence: US)
  Receive Date: 20210622
  Receipt Date: 20210622
  Transmission Date: 20210717
  Serious: No
  Sender: FDA-Public Use
  Company Number: US-GLAXOSMITHKLINE-US2021133144

PATIENT
  Age: 74 Year
  Sex: Female

DRUGS (1)
  1. TRELEGY ELLIPTA [Suspect]
     Active Substance: FLUTICASONE FUROATE\UMECLIDINIUM BROMIDE\VILANTEROL TRIFENATATE
     Indication: ASTHMA
     Dosage: 100 MG, QD, (100/62.5/25 MG)
     Route: 055
     Dates: start: 202106

REACTIONS (5)
  - Asthenia [Unknown]
  - Malaise [Unknown]
  - Gastrointestinal disorder [Unknown]
  - Nausea [Unknown]
  - Dysphonia [Unknown]
